FAERS Safety Report 8539544-X (Version None)
Quarter: 2012Q3

REPORT INFORMATION
  Report Type: 
  Country: None (occurrence: None)
  Receive Date: 20120726
  Receipt Date: 20120713
  Transmission Date: 20120928
  Serious: Yes (Disabling)
  Sender: FDA-Public Use
  Company Number: JP-ELI_LILLY_AND_COMPANY-JP201205005901

PATIENT
  Sex: Male
  Weight: 19.7 kg

DRUGS (4)
  1. STRATTERA [Suspect]
     Dosage: 5 MG, BID
     Route: 048
     Dates: start: 20120201
  2. ALLEGRA [Concomitant]
     Dosage: UNK
     Route: 048
     Dates: start: 20090313
  3. STRATTERA [Suspect]
     Indication: ATTENTION DEFICIT/HYPERACTIVITY DISORDER
     Dosage: 15 MG, BID
     Route: 048
     Dates: start: 20110301, end: 20120201
  4. IPD [Concomitant]
     Dosage: UNK
     Route: 048
     Dates: start: 20090313

REACTIONS (1)
  - PARKINSONISM [None]
